FAERS Safety Report 9424338 (Version 1)
Quarter: 2013Q3

REPORT INFORMATION
  Report Type: Spontaneous
  Country: US (occurrence: None)
  Receive Date: 20130726
  Receipt Date: 20130726
  Transmission Date: 20140515
  Serious: No
  Sender: FDA-Public Use
  Company Number: None

PATIENT
  Age: 62 Year
  Sex: Male
  Weight: 119 kg

DRUGS (2)
  1. CISPLATIN [Suspect]
     Dates: end: 20101005
  2. PACLITAXEL [Suspect]
     Dates: end: 20101005

REACTIONS (4)
  - Decreased appetite [None]
  - Diarrhoea [None]
  - Dizziness [None]
  - Dehydration [None]
